FAERS Safety Report 4743985-6 (Version None)
Quarter: 2005Q3

REPORT INFORMATION
  Report Type: 
  Country: None (occurrence: None)
  Receive Date: 20050809
  Receipt Date: 20050727
  Transmission Date: 20060218
  Serious: Yes (Hospitalization)
  Sender: FDA-Public Use
  Company Number: 2005EU001703

PATIENT
  Age: 34 Year
  Sex: Male

DRUGS (9)
  1. FK506(TACROLIMUS ) [Suspect]
     Indication: RENAL TRANSPLANT
     Dosage: 5.00 MG BID ORAL
     Route: 048
     Dates: start: 20040803
  2. DACLIZUMAB (DACLIZUMAB) [Suspect]
     Indication: RENAL TRANSPLANT
     Dosage: 130.00 MG UID/QD IV NOS
     Route: 042
     Dates: start: 20040803, end: 20040927
  3. MYCOPHENOLATE MOFETIL (MYCOPHENOLATE MOFETIL) [Suspect]
     Indication: RENAL TRANSPLANT
     Dosage: BID ORAL
     Route: 048
     Dates: start: 20040803
  4. PREDNISONE [Suspect]
     Indication: RENAL TRANSPLANT
     Dosage: 20.00 MG ORAL
     Route: 048
     Dates: start: 20040803
  5. OMEPRAZOLE [Concomitant]
  6. AMLODIPINE [Concomitant]
  7. METOPROLOL TARTRATE [Concomitant]
  8. DOXAZOSIN (DOXAZOSIN) [Concomitant]
  9. VALACICLOCIR [Concomitant]

REACTIONS (7)
  - BLOOD CREATININE INCREASED [None]
  - C-REACTIVE PROTEIN INCREASED [None]
  - FATIGUE [None]
  - PSEUDOMONAS INFECTION [None]
  - PYELONEPHRITIS ACUTE [None]
  - TACHYCARDIA [None]
  - UROSEPSIS [None]
